FAERS Safety Report 12352936 (Version 1)
Quarter: 2016Q2

REPORT INFORMATION
  Report Type: Spontaneous
  Country: US (occurrence: US)
  Receive Date: 20160510
  Receipt Date: 20160510
  Transmission Date: 20160815
  Serious: No
  Sender: FDA-Public Use
  Company Number: US-MDT-ADR-2016-00365

PATIENT
  Sex: Male

DRUGS (1)
  1. BACLOFEN. [Suspect]
     Active Substance: BACLOFEN
     Dosage: 494MCG/DAY
     Route: 037

REACTIONS (11)
  - Sleep disorder [Unknown]
  - Musculoskeletal stiffness [Unknown]
  - Flatulence [Unknown]
  - Unevaluable event [Unknown]
  - Pain [Unknown]
  - Headache [Unknown]
  - Anger [Unknown]
  - Body temperature increased [Unknown]
  - Constipation [Unknown]
  - Fatigue [Unknown]
  - Toothache [Unknown]

NARRATIVE: CASE EVENT DATE: 2009
